FAERS Safety Report 7063385-6 (Version None)
Quarter: 2010Q4

REPORT INFORMATION
  Report Type: 
  Country: None (occurrence: None)
  Receive Date: 20101026
  Receipt Date: 20100716
  Transmission Date: 20110411
  Serious: No
  Sender: FDA-Public Use
  Company Number: US-PFIZER INC-2010089393

PATIENT
  Sex: Male
  Weight: 84 kg

DRUGS (7)
  1. LIPITOR [Suspect]
     Indication: BLOOD CHOLESTEROL INCREASED
     Dosage: 40 MG, 1X/DAY
     Route: 048
     Dates: start: 20020101
  2. LIPITOR [Suspect]
     Indication: CORONARY ARTERY BYPASS
  3. FENOFIBRIC ACID [Concomitant]
     Dosage: UNK
  4. COZAAR [Concomitant]
     Dosage: UNK
  5. COREG [Concomitant]
     Dosage: UNK
  6. ACETYLSALICYLIC ACID [Concomitant]
     Dosage: UNK
  7. NITROGLYCERIN [Concomitant]
     Dosage: UNK, AS NEEDED

REACTIONS (2)
  - ACNE [None]
  - SKIN LESION [None]
